FAERS Safety Report 22096392 (Version 4)
Quarter: 2023Q2

REPORT INFORMATION
  Report Type: Report from Study
  Country: US (occurrence: US)
  Receive Date: 20230315
  Receipt Date: 20230414
  Transmission Date: 20230722
  Serious: No
  Sender: FDA-Public Use
  Company Number: US-002147023-NVSC2023US057306

PATIENT
  Age: 59 Year
  Sex: Male

DRUGS (1)
  1. ENTRESTO [Suspect]
     Active Substance: SACUBITRIL\VALSARTAN
     Indication: Product used for unknown indication
     Dosage: UNK
     Route: 048
     Dates: start: 2021

REACTIONS (16)
  - Influenza like illness [Unknown]
  - Oropharyngeal pain [Unknown]
  - Pyrexia [Unknown]
  - Blood glucose increased [Recovering/Resolving]
  - Confusional state [Recovering/Resolving]
  - Speech disorder [Recovering/Resolving]
  - Gait disturbance [Recovering/Resolving]
  - Swelling [Recovering/Resolving]
  - Pain [Unknown]
  - Pain in extremity [Recovering/Resolving]
  - Depressed mood [Recovering/Resolving]
  - Weight decreased [Unknown]
  - Insomnia [Recovering/Resolving]
  - Headache [Recovering/Resolving]
  - Cough [Unknown]
  - Dizziness [Recovering/Resolving]

NARRATIVE: CASE EVENT DATE: 20230101
